FAERS Safety Report 20377193 (Version 6)
Quarter: 2022Q4

REPORT INFORMATION
  Report Type: Spontaneous
  Country: GB (occurrence: GB)
  Receive Date: 20220125
  Receipt Date: 20221024
  Transmission Date: 20230113
  Serious: Yes (Other)
  Sender: FDA-Public Use
  Company Number: GB-EMA-DD-20201113-prabhakar_d-152902

PATIENT
  Age: 39 Year
  Sex: Female

DRUGS (37)
  1. ACYCLOVIR [Suspect]
     Active Substance: ACYCLOVIR
     Indication: Product used for unknown indication
     Dosage: 200 MG, BID, EVERY 12 HOUR
     Route: 065
  2. ACYCLOVIR [Suspect]
     Active Substance: ACYCLOVIR
     Dosage: 200 MG, TID (EVERY 8 HOURS) 200 MG, Q8H
     Route: 065
  3. ACYCLOVIR [Suspect]
     Active Substance: ACYCLOVIR
     Dosage: 600 MG, QD (200 MG BID, PRIOR TO INFUSION)
     Route: 065
  4. ACYCLOVIR [Suspect]
     Active Substance: ACYCLOVIR
     Dosage: 200 MG QD
     Route: 065
  5. ACYCLOVIR [Suspect]
     Active Substance: ACYCLOVIR
     Dosage: 200 MG, TID (EVERY 8 HOURS)
     Route: 065
  6. ACYCLOVIR [Suspect]
     Active Substance: ACYCLOVIR
     Dosage: 400 MILLIGRAM, QD, 200 MG, BID, PRIOR TO INFUSION
     Route: 065
  7. ACYCLOVIR [Suspect]
     Active Substance: ACYCLOVIR
     Dosage: 200 MG,BID
     Route: 065
  8. ACYCLOVIR [Suspect]
     Active Substance: ACYCLOVIR
     Dosage: 200 MG, TID
     Route: 065
  9. ACYCLOVIR [Suspect]
     Active Substance: ACYCLOVIR
     Dosage: 200 MG, TID, Q8H
     Route: 065
  10. ACYCLOVIR [Suspect]
     Active Substance: ACYCLOVIR
     Dosage: 200 MILLIGRAM,QD
     Route: 065
  11. SODIUM CHLORIDE [Suspect]
     Active Substance: SODIUM CHLORIDE
     Indication: Medication dilution
     Dosage: 1G OF METHYLPREDNISOLONE IN 100MLS NACL 0.9% (MONDAY, TUESDAY AND WEDNESDAY- FIRST 3 DAYS
     Route: 065
  12. METHYLPREDNISOLONE [Suspect]
     Active Substance: METHYLPREDNISOLONE
     Indication: Product used for unknown indication
     Dosage: 1G IN 100MLS NACL 0.9% (MONDAY, TUESDAY AND WEDNESDAY - FIRST THREE DAYS)
     Route: 065
  13. METHYLPREDNISOLONE [Suspect]
     Active Substance: METHYLPREDNISOLONE
     Dosage: 1G IN 100MLS NACL 0.9% (MONDAY, TUESDAY AND WEDNESDAY - FIRST 3 DAYS,PRIOR TO INFUSION
     Route: 065
  14. METHYLPREDNISOLONE [Suspect]
     Active Substance: METHYLPREDNISOLONE
     Dosage: UNK (1 G IN 100 ML NACL 0.9% (MONDAY, TUESDAY, AND WEDNESDAY - FIRST THREE DAYS), PRIOR TO INFUSION)
     Route: 065
  15. METHYLPREDNISOLONE [Suspect]
     Active Substance: METHYLPREDNISOLONE
     Dosage: 1G IN 100MLS NACL 0.9% (MONDAY, TUESDAY AND WEDNESDAY ? FIRST 3 DAYS,PRIOR TO INFUSION
     Route: 065
  16. SULFAMETHOXAZOLE [Suspect]
     Active Substance: SULFAMETHOXAZOLE
     Indication: Product used for unknown indication
     Dosage: 960 MG MONDAY, WEDNESDAY, AND FRIDAY, 480MG MORNING AND EVENINGS)
     Route: 065
  17. SULFAMETHOXAZOLE [Suspect]
     Active Substance: SULFAMETHOXAZOLE
     Dosage: 960 MG, QD
     Route: 065
  18. ACETAMINOPHEN [Suspect]
     Active Substance: ACETAMINOPHEN
     Indication: Product used for unknown indication
     Dosage: 1 G, PRIOR TO INFUSION, THERAPY START DATE AND END DATE: ASKED BUT UNKNOWN
     Route: 048
  19. ACETAMINOPHEN [Suspect]
     Active Substance: ACETAMINOPHEN
     Dosage: 1 G, PRIOR TO INFUSION
     Route: 048
  20. ACETAMINOPHEN [Suspect]
     Active Substance: ACETAMINOPHEN
     Dosage: 1 G, UNK
     Route: 048
  21. LEMTRADA [Suspect]
     Active Substance: ALEMTUZUMAB
     Indication: Multiple sclerosis
     Dosage: 12 MG
     Route: 041
     Dates: start: 20190408
  22. OMEPRAZOLE [Suspect]
     Active Substance: OMEPRAZOLE
     Indication: Product used for unknown indication
     Dosage: 20 MG, PRIOR TO INFUSION
     Route: 048
  23. OMEPRAZOLE [Suspect]
     Active Substance: OMEPRAZOLE
     Dosage: 20 MG, UNK
     Route: 048
  24. OMEPRAZOLE [Suspect]
     Active Substance: OMEPRAZOLE
     Dosage: 20 MG, PRIOR TO INFUSION
     Route: 048
  25. OMEPRAZOLE [Suspect]
     Active Substance: OMEPRAZOLE
     Dosage: 20 MG, PRIOR TO INFUSION
     Route: 048
  26. OMEPRAZOLE [Suspect]
     Active Substance: OMEPRAZOLE
     Dosage: 20 MG
     Route: 048
  27. OMEPRAZOLE [Suspect]
     Active Substance: OMEPRAZOLE
     Dosage: 20 MG, PRIOR TO INFUSION
     Route: 048
  28. CHLORPHENIRAMINE MALEATE [Suspect]
     Active Substance: CHLORPHENIRAMINE MALEATE
     Indication: Product used for unknown indication
     Dosage: 10 MG, UNK (PRIOR TO INFUSION)
     Route: 042
  29. COTRIMOXAZOLE [Suspect]
     Active Substance: SULFAMETHOXAZOLE\TRIMETHOPRIM
     Indication: Product used for unknown indication
     Dosage: 960 MG MONDAY, WEDNESDAY, AND FRIDAY, 480 MG MORNING AND EVENINGS), PRIOR TO INFUSION)
     Route: 065
  30. ALEMTUZUMAB [Suspect]
     Active Substance: ALEMTUZUMAB
     Indication: Multiple sclerosis
     Dosage: 12 MG
     Route: 041
     Dates: start: 20190408
  31. TRIMETHOPRIM [Suspect]
     Active Substance: TRIMETHOPRIM
     Indication: Product used for unknown indication
     Dosage: 900 MG,QD
     Route: 065
  32. TRIMETHOPRIM [Suspect]
     Active Substance: TRIMETHOPRIM
     Dosage: 960 MG, QD (480 MG, BID (MONDAY, WEDNESDAY, AND FRIDAY), PRIOR TO INFUSION)
     Route: 065
  33. TRIMETHOPRIM [Suspect]
     Active Substance: TRIMETHOPRIM
     Dosage: 900 MG,QD
     Route: 065
  34. TRIMETHOPRIM [Suspect]
     Active Substance: TRIMETHOPRIM
     Dosage: 900 MG,QD
     Route: 065
  35. TRIMETHOPRIM [Suspect]
     Active Substance: TRIMETHOPRIM
     Dosage: 960 MG MONDAY,WEDNESDAY, AND FRIDAY, 480MG MORNING AND EVENINGS)
     Route: 065
  36. TRIMETHOPRIM [Suspect]
     Active Substance: TRIMETHOPRIM
     Dosage: 960 MG, QD (480 MG, BID (MONDAY, WEDNESDAY, AND FRIDAY), PRIOR TO INFUSION)
     Route: 065
  37. TRIMETHOPRIM [Suspect]
     Active Substance: TRIMETHOPRIM
     Dosage: 900 MG,QD
     Route: 065

REACTIONS (18)
  - Urinary tract infection [Not Recovered/Not Resolved]
  - Muscular weakness [Recovered/Resolved]
  - Palpitations [Recovered/Resolved]
  - Vertigo [Not Recovered/Not Resolved]
  - Feeling hot [Not Recovered/Not Resolved]
  - Paraesthesia [Not Recovered/Not Resolved]
  - Feeling cold [Not Recovered/Not Resolved]
  - Vision blurred [Recovered/Resolved]
  - Somnolence [Not Recovered/Not Resolved]
  - Flushing [Not Recovered/Not Resolved]
  - Chest discomfort [Recovering/Resolving]
  - Heart rate increased [Not Recovered/Not Resolved]
  - Chest discomfort [Recovered/Resolved]
  - Chest discomfort [Recovered/Resolved]
  - Nausea [Not Recovered/Not Resolved]
  - Headache [Not Recovered/Not Resolved]
  - Dyspnoea [Recovered/Resolved]
  - Hypotension [Not Recovered/Not Resolved]

NARRATIVE: CASE EVENT DATE: 20190401
